FAERS Safety Report 16892741 (Version 3)
Quarter: 2021Q3

REPORT INFORMATION
  Report Type: Spontaneous
  Country: US (occurrence: US)
  Receive Date: 20191007
  Receipt Date: 20210728
  Transmission Date: 20211014
  Serious: Yes (Hospitalization)
  Sender: FDA-Public Use
  Company Number: US-VIFOR (INTERNATIONAL) INC.-VIT-2019-08849

PATIENT
  Age: 71 Year
  Sex: Male

DRUGS (13)
  1. PREDNISOLONE. [Concomitant]
     Active Substance: PREDNISOLONE
  2. FLUTICASONE. [Concomitant]
     Active Substance: FLUTICASONE
  3. HUMALOG [Concomitant]
     Active Substance: INSULIN LISPRO
  4. VELTASSA [Suspect]
     Active Substance: PATIROMER
     Indication: HYPERKALAEMIA
     Route: 048
     Dates: start: 20170321
  5. ATROPINE. [Concomitant]
     Active Substance: ATROPINE
  6. ISOSORB [Concomitant]
  7. LEVOTHYROXIN [Concomitant]
     Active Substance: LEVOTHYROXINE
  8. LISINOPRIL. [Concomitant]
     Active Substance: LISINOPRIL
  9. LOVASTATIN. [Concomitant]
     Active Substance: LOVASTATIN
  10. CALCIUM ACETATE. [Concomitant]
     Active Substance: CALCIUM ACETATE
  11. FAMOTIDE [Concomitant]
  12. CARVEDILOL. [Concomitant]
     Active Substance: CARVEDILOL
  13. BENZONATE [Concomitant]
     Active Substance: BENZONATATE

REACTIONS (3)
  - Abdominal pain [Not Recovered/Not Resolved]
  - Muscle strain [Not Recovered/Not Resolved]
  - COVID-19 [Not Recovered/Not Resolved]

NARRATIVE: CASE EVENT DATE: 201908
